FAERS Safety Report 15319133 (Version 1)
Quarter: 2018Q3

REPORT INFORMATION
  Report Type: Spontaneous
  Country: US (occurrence: US)
  Receive Date: 20180826
  Receipt Date: 20180826
  Transmission Date: 20181010
  Serious: No
  Sender: FDA-Public Use
  Company Number: US-UNITED THERAPEUTICS-UNT-2018-013352

PATIENT
  Sex: Male

DRUGS (1)
  1. REMODULIN [Suspect]
     Active Substance: TREPROSTINIL
     Indication: PULMONARY ARTERIAL HYPERTENSION
     Dosage: 0.21 ?G/KG, CONTINUING
     Route: 041
     Dates: start: 20140627

REACTIONS (2)
  - Injection site haemorrhage [Unknown]
  - Complication associated with device [Unknown]

NARRATIVE: CASE EVENT DATE: 20180820
